FAERS Safety Report 6758807-1 (Version None)
Quarter: 2010Q2

REPORT INFORMATION
  Report Type: 
  Country: None (occurrence: None)
  Receive Date: 20100603
  Receipt Date: 20100519
  Transmission Date: 20101027
  Serious: Yes (Hospitalization)
  Sender: FDA-Public Use
  Company Number: 2009003185

PATIENT
  Age: 49 Year
  Sex: Female
  Weight: 37.6 kg

DRUGS (8)
  1. ERLOTINIB HYDROCHLORIDE [Suspect]
     Indication: NON-SMALL CELL LUNG CANCER
     Dosage: (150 MG,QD), ORAL
     Route: 048
     Dates: start: 20090903, end: 20090924
  2. ERLOTINIB HYDROCHLORIDE [Suspect]
     Indication: NON-SMALL CELL LUNG CANCER
     Dosage: (150 MG,QD), ORAL
     Route: 048
     Dates: start: 20090928
  3. MEGESTROL ACETATE [Concomitant]
  4. OXYCODONE HCL [Concomitant]
  5. GABAPENTIN [Concomitant]
  6. NEXIUM [Concomitant]
  7. MAGIC MOUTHWASH [Concomitant]
  8. MAGNESIUM (MAGNESIUM) [Concomitant]

REACTIONS (5)
  - BLOOD BILIRUBIN INCREASED [None]
  - BLOOD MAGNESIUM DECREASED [None]
  - CONDITION AGGRAVATED [None]
  - FAILURE TO THRIVE [None]
  - HYPERCALCAEMIA [None]
